FAERS Safety Report 6860093-9 (Version None)
Quarter: 2010Q3

REPORT INFORMATION
  Report Type: 
  Country: None (occurrence: None)
  Receive Date: 20100720
  Receipt Date: 20100708
  Transmission Date: 20110219
  Serious: Yes (Other)
  Sender: FDA-Public Use
  Company Number: US-PFIZER INC-2010086109

PATIENT
  Sex: Male
  Weight: 88.44 kg

DRUGS (1)
  1. CHANTIX [Suspect]
     Indication: SMOKING CESSATION THERAPY
     Dosage: 1 MG, 2X/DAY
     Route: 048
     Dates: start: 20100601, end: 20100628

REACTIONS (5)
  - ABNORMAL DREAMS [None]
  - FOOT FRACTURE [None]
  - INJURY [None]
  - SOMNAMBULISM [None]
  - SWELLING [None]
